FAERS Safety Report 7548215-8 (Version None)
Quarter: 2011Q2

REPORT INFORMATION
  Report Type: 
  Country: None (occurrence: None)
  Receive Date: 20110608
  Receipt Date: 20110524
  Transmission Date: 20111010
  Serious: Yes (Other)
  Sender: FDA-Public Use
  Company Number: 2011MA006535

PATIENT
  Age: 7 Month
  Sex: Female

DRUGS (2)
  1. MIRTAZAPINE [Suspect]
     Dosage: ;5 MG;QD;
     Dates: start: 20101028
  2. MIRTAZAPINE [Suspect]
     Indication: DEPRESSION
     Dosage: 15 MG;QD
     Dates: start: 20101028

REACTIONS (3)
  - AKATHISIA [None]
  - HYPERKINESIA [None]
  - BALLISMUS [None]
